FAERS Safety Report 4498495-0 (Version None)
Quarter: 2004Q4

REPORT INFORMATION
  Report Type: 
  Country: None (occurrence: None)
  Receive Date: 20041105
  Receipt Date: 20041021
  Transmission Date: 20050328
  Serious: Yes (Other)
  Sender: FDA-Public Use
  Company Number: A0530742A

PATIENT
  Age: 58 Year
  Sex: Female

DRUGS (4)
  1. COMMIT [Suspect]
     Indication: NERVOUSNESS
     Dosage: 2 MG / VARIABLE DOSE / TRANSBUCCAL
     Dates: start: 20040101
  2. LEVALBUTEROL HYDROCHLORIDE [Concomitant]
  3. ... [Concomitant]
  4. IPATROPIUM BROMIDE [Concomitant]

REACTIONS (3)
  - DEPENDENCE [None]
  - IRRITABILITY [None]
  - SOMNOLENCE [None]
